FAERS Safety Report 5802296-8 (Version None)
Quarter: 2008Q3

REPORT INFORMATION
  Report Type: 
  Country: None (occurrence: None)
  Receive Date: 20080707
  Receipt Date: 20080627
  Transmission Date: 20090109
  Serious: Yes (Hospitalization)
  Sender: FDA-Public Use
  Company Number: JP-ROCHE-572912

PATIENT
  Sex: Male
  Weight: 50.4 kg

DRUGS (12)
  1. CAPECITABINE [Suspect]
     Indication: GASTRIC CANCER
     Dosage: BATCH NO. REPORTED AS: 90871 (150 MG TAB), 79731 (500 MG TAB) FORM REPORTED AS: INFUSION
     Route: 048
     Dates: start: 20080411, end: 20080625
  2. BLINDED BEVACIZUMAB [Suspect]
     Indication: GASTRIC CANCER
     Dosage: FORM REPORTED AS: INFUSION
     Route: 042
     Dates: start: 20080411
  3. CISPLATIN [Suspect]
     Indication: GASTRIC CANCER
     Dosage: FORM REPORTED AS: INFUSION
     Route: 042
     Dates: start: 20080411
  4. VOGLIBOSE [Concomitant]
     Dates: start: 20060401, end: 20080626
  5. MOSAPRIDE CITRATE [Concomitant]
     Dates: start: 20060401, end: 20080626
  6. LOSARTAN POTASSIUM [Concomitant]
     Dates: start: 20060401, end: 20080626
  7. AMLODIPINE BESYLATE [Concomitant]
     Dates: start: 20080502, end: 20080626
  8. FERROUS SULFATE TAB [Concomitant]
     Dosage: DRUG NAME REPORTED AS: DRIED FERROUS SULFATE
     Dates: start: 20080623, end: 20080626
  9. LOXOPROFEN SODIUM [Concomitant]
     Dosage: DRUG NAME REPORTED AS: LOXOPROFEN SODIUM HYDRATE
     Dates: start: 20080624, end: 20080626
  10. DOMPERIDONE [Concomitant]
     Dates: start: 20080626, end: 20080626
  11. DICLOFENAC SODIUM [Concomitant]
     Dosage: TDD: PRN
     Dates: start: 20080626, end: 20080626
  12. PENTAZOCINE LACTATE [Concomitant]
     Dosage: TDD: PRN
     Dates: start: 20080626, end: 20080627

REACTIONS (1)
  - GASTRIC PERFORATION [None]
